FAERS Safety Report 8360463-6 (Version None)
Quarter: 2012Q2

REPORT INFORMATION
  Report Type: 
  Country: None (occurrence: None)
  Receive Date: 20120515
  Receipt Date: 20120511
  Transmission Date: 20120825
  Serious: Yes (Hospitalization, Other)
  Sender: FDA-Public Use
  Company Number: BR-B.I. PHARMACEUTICALS,INC./RIDGEFIELD-2012-BR-00495BR

PATIENT
  Sex: Female
  Weight: 46 kg

DRUGS (4)
  1. TRAYENTA [Concomitant]
     Indication: DIABETES MELLITUS
     Dates: start: 20120101
  2. MICARDIS HCT [Suspect]
     Indication: HYPERTENSION
     Dosage: TELMISARTAN 80 MG HYDROCHLOROTHIAZIDE 12,5 MG
     Route: 048
     Dates: start: 20110101, end: 20120501
  3. MANIVASC [Concomitant]
     Indication: BLOOD PRESSURE INCREASED
     Dates: start: 20110101
  4. XALATAN [Concomitant]
     Indication: GLAUCOMA
     Dates: start: 20100101

REACTIONS (2)
  - URINARY TRACT INFECTION [None]
  - RENAL DISORDER [None]
